FAERS Safety Report 8071308-6 (Version None)
Quarter: 2012Q1

REPORT INFORMATION
  Report Type: 
  Country: None (occurrence: None)
  Receive Date: 20120125
  Receipt Date: 20120118
  Transmission Date: 20120608
  Serious: Yes (Hospitalization, Other)
  Sender: FDA-Public Use
  Company Number: KR-JNJFOC-20120106822

PATIENT
  Age: 42 Year
  Sex: Female

DRUGS (2)
  1. REMICADE [Suspect]
     Indication: PSORIASIS
     Route: 042
     Dates: start: 20110701, end: 20111101
  2. ANTITUBERCULOSIS DRUG NOS [Concomitant]
     Route: 048
     Dates: start: 20110601, end: 20120101

REACTIONS (4)
  - FALL [None]
  - HEPATITIS ACUTE [None]
  - RASH [None]
  - INFUSION RELATED REACTION [None]
